FAERS Safety Report 6705886-3 (Version None)
Quarter: 2010Q2

REPORT INFORMATION
  Report Type: 
  Country: None (occurrence: None)
  Receive Date: 20100503
  Receipt Date: 20100224
  Transmission Date: 20101027
  Serious: No
  Sender: FDA-Public Use
  Company Number: US-ASTRAZENECA-2010SE08198

PATIENT
  Sex: Female

DRUGS (6)
  1. NEXIUM [Suspect]
     Dosage: ONCE A DAY
     Route: 048
  2. NEXIUM [Suspect]
     Dosage: TWO TIMES A DAY
     Route: 048
  3. NEXIUM [Suspect]
     Dosage: ONCE A DAY
     Route: 048
  4. CRESTOR [Suspect]
     Route: 048
     Dates: start: 20040101
  5. CRESTOR [Suspect]
     Route: 048
  6. ZETIA [Suspect]

REACTIONS (3)
  - ARTHRALGIA [None]
  - NAUSEA [None]
  - VOMITING [None]
